FAERS Safety Report 8222999-8 (Version None)
Quarter: 2012Q1

REPORT INFORMATION
  Report Type: 
  Country: None (occurrence: None)
  Receive Date: 20120320
  Receipt Date: 20120312
  Transmission Date: 20120608
  Serious: Yes (Hospitalization)
  Sender: FDA-Public Use
  Company Number: US-ASTRAZENECA-2011SE41566

PATIENT
  Age: 53 Year
  Sex: Female

DRUGS (11)
  1. PAXIL [Concomitant]
     Indication: EMOTIONAL DISTRESS
  2. CELABREX [Concomitant]
  3. SYMBICORT [Concomitant]
  4. CALCIUM CARBONATE [Concomitant]
  5. CALCIUM CARBONATE [Concomitant]
     Dosage: DOUBLE DOSE
     Dates: start: 20090101
  6. ZANTAC [Concomitant]
     Dates: start: 19900101
  7. PAXIL [Concomitant]
     Indication: ANXIETY
  8. NEXIUM [Suspect]
     Indication: GASTROOESOPHAGEAL REFLUX DISEASE
     Route: 048
     Dates: start: 20060101, end: 20100901
  9. PRILOSEC [Concomitant]
     Dates: start: 19900101
  10. PAXIL [Concomitant]
     Indication: DEPRESSION
  11. PREVACID [Concomitant]
     Dates: start: 19900101

REACTIONS (8)
  - PATELLA FRACTURE [None]
  - BONE DISORDER [None]
  - OSTEOMYELITIS [None]
  - VITAMIN D DEFICIENCY [None]
  - DEPRESSION [None]
  - EMOTIONAL DISTRESS [None]
  - OSTEOPOROSIS [None]
  - ANXIETY [None]
